FAERS Safety Report 4395819-X (Version None)
Quarter: 2004Q3

REPORT INFORMATION
  Report Type: 
  Country: None (occurrence: None)
  Receive Date: 20040707
  Receipt Date: 20040624
  Transmission Date: 20050211
  Serious: Yes (Death, Other)
  Sender: FDA-Public Use
  Company Number: 2004036241

PATIENT
  Age: 81 Year
  Sex: Female
  Weight: 34 kg

DRUGS (2)
  1. DIFLUCAN [Suspect]
     Indication: FUNGAEMIA
     Dosage: 400 MG (2 IN 1 D, INTRAVENOUS
     Route: 042
     Dates: start: 20040514, end: 20040516
  2. TIENAM (CILASTATIN, IMIPENEM) [Concomitant]

REACTIONS (3)
  - CONDITION AGGRAVATED [None]
  - CONVULSION [None]
  - SEPSIS [None]
